FAERS Safety Report 25602807 (Version 1)
Quarter: 2025Q3

REPORT INFORMATION
  Report Type: Spontaneous
  Country: US (occurrence: US)
  Receive Date: 20250724
  Receipt Date: 20250724
  Transmission Date: 20251021
  Serious: Yes (Life-Threatening)
  Sender: Karo Pharma
  Company Number: US-Karo Pharma-2181144

PATIENT
  Age: 39 Year
  Sex: Female

DRUGS (1)
  1. LAMISIL [Suspect]
     Active Substance: TERBINAFINE HYDROCHLORIDE
     Indication: Body tinea

REACTIONS (2)
  - Immune thrombocytopenia [Recovered/Resolved]
  - Cerebral haemorrhage [Recovered/Resolved]
